FAERS Safety Report 19078338 (Version 2)
Quarter: 2024Q4

REPORT INFORMATION
  Report Type: Spontaneous
  Country: CA (occurrence: CA)
  Receive Date: 20210331
  Receipt Date: 20241028
  Transmission Date: 20250115
  Serious: Yes (Other)
  Sender: MERCK
  Company Number: CA-009507513-2103CAN008058

PATIENT
  Age: 70 Year
  Sex: Female
  Weight: 58 kg

DRUGS (2)
  1. KEYTRUDA [Suspect]
     Active Substance: PEMBROLIZUMAB
     Indication: Non-small cell lung cancer stage IV
     Dosage: DOSE: ^111.4^ (UNITS NOT PROVIDED); EVERY 3 WEEKS; STRENGTH 25 MG/ML (4 ML VIAL); Q3W
     Route: 042
     Dates: start: 20200416, end: 20200910
  2. ACETAMINOPHEN [Concomitant]
     Active Substance: ACETAMINOPHEN
     Dosage: DOSAGE FORM: NOT SPECIFIED

REACTIONS (3)
  - Abdominal pain [Unknown]
  - Drug-induced liver injury [Unknown]
  - Hepatic function abnormal [Unknown]

NARRATIVE: CASE EVENT DATE: 20201001
